FAERS Safety Report 5536235-4 (Version None)
Quarter: 2007Q4

REPORT INFORMATION
  Report Type: 
  Country: None (occurrence: None)
  Receive Date: 20071206
  Receipt Date: 20071125
  Transmission Date: 20080405
  Serious: Yes (Other)
  Sender: FDA-Public Use
  Company Number: US-PFIZER INC-2007100532

PATIENT
  Sex: Male
  Weight: 100 kg

DRUGS (1)
  1. CHANTIX [Suspect]
     Indication: SMOKING CESSATION THERAPY
     Dates: start: 20071027, end: 20071119

REACTIONS (6)
  - ANXIETY [None]
  - CRYING [None]
  - NAUSEA [None]
  - SELF-INJURIOUS IDEATION [None]
  - SENSATION OF PRESSURE [None]
  - SUICIDE ATTEMPT [None]
